FAERS Safety Report 6168669-1 (Version None)
Quarter: 2009Q2

REPORT INFORMATION
  Report Type: 
  Country: None (occurrence: None)
  Receive Date: 20090423
  Receipt Date: 20090410
  Transmission Date: 20091009
  Serious: Yes (Hospitalization, Disabling)
  Sender: FDA-Public Use
  Company Number: 09DE000796

PATIENT

DRUGS (4)
  1. IBUPROFEN [Suspect]
     Indication: PATENT DUCTUS ARTERIOSUS
     Dosage: 10 MG/KG, ORAL; 5 MG/KG, ORAL
     Route: 048
  2. IBUPROFEN [Suspect]
     Indication: PATENT DUCTUS ARTERIOSUS
     Dosage: 10 MG/KG, ORAL; 5 MG/KG, ORAL
     Route: 048
  3. ALBUMIN (HUMAN) [Concomitant]
  4. PHOTOTHERAPY [Concomitant]

REACTIONS (5)
  - HEARING IMPAIRED [None]
  - HYPERBILIRUBINAEMIA [None]
  - KERNICTERUS [None]
  - MOTOR DYSFUNCTION [None]
  - SPEECH DISORDER DEVELOPMENTAL [None]
